FAERS Safety Report 8902440 (Version 3)
Quarter: 2013Q3

REPORT INFORMATION
  Report Type: Report from Study
  Country: JP (occurrence: JP)
  Receive Date: 20121112
  Receipt Date: 20130917
  Transmission Date: 20140515
  Serious: Yes (Hospitalization, Other)
  Sender: FDA-Public Use
  Company Number: JP-VERTEX PHARMACEUTICAL INC.-AE-2012-003684

PATIENT
  Age: 66 Year
  Sex: Female

DRUGS (21)
  1. VX-950 (TELAPREVIR) [Suspect]
     Indication: CHRONIC HEPATITIS C
     Dosage: 2250 MG, QD
     Route: 048
     Dates: start: 20120124, end: 20120212
  2. VX-950 (TELAPREVIR) [Suspect]
     Dosage: 1500 MG, QD
     Route: 048
     Dates: start: 20120213, end: 20120214
  3. VX-950 (TELAPREVIR) [Suspect]
     Dosage: 1000 MG, QD
     Route: 048
     Dates: start: 20120215, end: 20120219
  4. VX-950 (TELAPREVIR) [Suspect]
     Dosage: 750 MG, QD
     Route: 048
     Dates: start: 20120220, end: 20120301
  5. VX-950 (TELAPREVIR) [Suspect]
     Dosage: 250 MG, QD
     Route: 048
     Dates: start: 20120312, end: 20120419
  6. PEGINTRON [Suspect]
     Indication: CHRONIC HEPATITIS C
     Dosage: 1.246 ?G/KG, QW
     Route: 058
     Dates: start: 20120124, end: 20120302
  7. PEGINTRON [Suspect]
     Dosage: 1 ?G/KG, QW
     Route: 058
     Dates: start: 20120312, end: 20120408
  8. PEGINTRON [Suspect]
     Dosage: 0.67 ?G/KG, QW
     Route: 058
     Dates: start: 20120409, end: 20120415
  9. PEGINTRON [Suspect]
     Dosage: 0.78 ?G/KG, QW
     Route: 058
     Dates: start: 20120416, end: 20120624
  10. PEGINTRON [Suspect]
     Dosage: 0.937 ?G/KG, QW
     Route: 058
     Dates: start: 20120625
  11. RIBAVIRIN [Suspect]
     Indication: CHRONIC HEPATITIS C
     Dosage: 600 MG, QD
     Route: 048
     Dates: start: 20120124, end: 20120219
  12. RIBAVIRIN [Suspect]
     Dosage: 400 MG, QD
     Route: 048
     Dates: start: 20120220, end: 20120226
  13. RIBAVIRIN [Suspect]
     Dosage: 200 MG, QD
     Route: 048
     Dates: start: 20120227, end: 20120301
  14. RIBAVIRIN [Suspect]
     Dosage: 200 MG, QD
     Route: 048
     Dates: start: 20120312, end: 20120501
  15. RIBAVIRIN [Suspect]
     Dosage: 400 MG, QD
     Route: 048
     Dates: start: 20120502, end: 20120617
  16. RIBAVIRIN [Suspect]
     Dosage: 600 MG, QD
     Route: 048
     Dates: start: 20120618
  17. VOLTAREN [Concomitant]
     Dosage: 50 MG, PRN
     Route: 054
     Dates: start: 20120124
  18. VOLTAREN  SR [Concomitant]
     Dosage: 37.5 MG, PRN
     Route: 048
     Dates: start: 20120125
  19. SELBEX [Concomitant]
     Dosage: 0.5 G, QD
     Route: 048
  20. TOUGHMAC E [Concomitant]
     Dosage: 3 DF, QD
     Route: 048
  21. URSO [Concomitant]
     Dosage: 600 MG, QD
     Route: 048

REACTIONS (3)
  - Decreased appetite [Not Recovered/Not Resolved]
  - Anaemia [Not Recovered/Not Resolved]
  - Anaemia [Recovered/Resolved]
